FAERS Safety Report 12951527 (Version 1)
Quarter: 2016Q4

REPORT INFORMATION
  Report Type: Spontaneous
  Country: CA (occurrence: CA)
  Receive Date: 20161117
  Receipt Date: 20161117
  Transmission Date: 20170207
  Serious: Yes (Other)
  Sender: FDA-Public Use
  Company Number: CA-BAYER-2016-219565

PATIENT
  Age: 33 Year
  Sex: Female

DRUGS (1)
  1. MIRENA [Suspect]
     Active Substance: LEVONORGESTREL
     Dosage: 20 MCG/24HR, CONT
     Route: 015
     Dates: start: 2013, end: 2016

REACTIONS (5)
  - Drug ineffective [None]
  - Medical device discomfort [None]
  - Device dislocation [None]
  - Ectopic pregnancy with contraceptive device [None]
  - Immune system disorder [None]

NARRATIVE: CASE EVENT DATE: 2016
